FAERS Safety Report 10504971 (Version 2)
Quarter: 2015Q3

REPORT INFORMATION
  Report Type: Report from Study
  Country: US (occurrence: US)
  Receive Date: 20141008
  Receipt Date: 20150730
  Transmission Date: 20151125
  Serious: Yes (Death, Other)
  Sender: FDA-Public Use
  Company Number: US-GILEAD-2014-0117619

PATIENT
  Age: 79 Year
  Sex: Male

DRUGS (24)
  1. AMBRISENTAN [Suspect]
     Active Substance: AMBRISENTAN
     Indication: PULMONARY FIBROSIS
  2. FENOFIBRATE. [Concomitant]
     Active Substance: FENOFIBRATE
  3. LASIX [Concomitant]
     Active Substance: FUROSEMIDE
  4. AMBRISENTAN [Suspect]
     Active Substance: AMBRISENTAN
     Indication: ASTHMA
  5. COMBIVENT [Concomitant]
     Active Substance: ALBUTEROL SULFATE\IPRATROPIUM BROMIDE
  6. NOVOLOG [Concomitant]
     Active Substance: INSULIN ASPART
  7. WARFARIN [Concomitant]
     Active Substance: WARFARIN
  8. GABAPENTIN. [Concomitant]
     Active Substance: GABAPENTIN
  9. ADVAIR HFA [Concomitant]
     Active Substance: FLUTICASONE PROPIONATE\SALMETEROL XINAFOATE
  10. LANTUS [Concomitant]
     Active Substance: INSULIN GLARGINE
  11. SUCRALFATE. [Concomitant]
     Active Substance: SUCRALFATE
  12. AMBRISENTAN [Suspect]
     Active Substance: AMBRISENTAN
     Indication: PULMONARY HYPERTENSION
     Dosage: 5 MG, QD
     Route: 065
     Dates: start: 201110, end: 20140926
  13. TRAVATAN Z [Concomitant]
     Active Substance: TRAVOPROST
  14. NEXIUM [Concomitant]
     Active Substance: ESOMEPRAZOLE MAGNESIUM
  15. ISOSORBIDE. [Concomitant]
     Active Substance: ISOSORBIDE
  16. COLCHICINE. [Concomitant]
     Active Substance: COLCHICINE
  17. LOSARTAN POTASSIUM. [Concomitant]
     Active Substance: LOSARTAN POTASSIUM
  18. OMEPRAZOLE. [Concomitant]
     Active Substance: OMEPRAZOLE
  19. AMBRISENTAN [Suspect]
     Active Substance: AMBRISENTAN
     Indication: DIABETES MELLITUS
  20. PREDNISOLONE. [Concomitant]
     Active Substance: PREDNISOLONE
  21. LYRICA [Concomitant]
     Active Substance: PREGABALIN
  22. AMITRIPTYLINE [Concomitant]
     Active Substance: AMITRIPTYLINE
  23. AMBRISENTAN [Suspect]
     Active Substance: AMBRISENTAN
     Indication: SLEEP APNOEA SYNDROME
  24. VALIUM [Concomitant]
     Active Substance: DIAZEPAM

REACTIONS (3)
  - Hyperventilation [Fatal]
  - Respiratory failure [Fatal]
  - Pulmonary hypertension [Fatal]
